FAERS Safety Report 4383060-6 (Version None)
Quarter: 2004Q2

REPORT INFORMATION
  Report Type: 
  Country: None (occurrence: None)
  Receive Date: 20040610
  Receipt Date: 20040331
  Transmission Date: 20050107
  Serious: No
  Sender: FDA-Public Use
  Company Number: US-JNJFOC-20040400302

PATIENT
  Age: 67 Year
  Sex: Female

DRUGS (1)
  1. NATRECOR [Suspect]
     Indication: CARDIAC FAILURE CONGESTIVE
     Dosage: 2 UG/KG
     Dates: start: 20040331, end: 20040331

REACTIONS (1)
  - NO ADVERSE DRUG EFFECT [None]
